FAERS Safety Report 18328285 (Version 2)
Quarter: 2022Q4

REPORT INFORMATION
  Report Type: Spontaneous
  Country: US (occurrence: US)
  Receive Date: 20200930
  Receipt Date: 20221222
  Transmission Date: 20230113
  Serious: Yes (Other)
  Sender: FDA-Public Use
  Company Number: US-SA-2020SA266019

PATIENT
  Age: 61 Year
  Sex: Male

DRUGS (7)
  1. DUPIXENT [Suspect]
     Active Substance: DUPILUMAB
     Indication: Dermatitis
     Dosage: 600 MG, 1X (LOADING DOSE)
     Route: 058
  2. DUPIXENT [Suspect]
     Active Substance: DUPILUMAB
     Indication: Eczema
     Dosage: 300 MG, QOW
     Route: 058
  3. DUPIXENT [Suspect]
     Active Substance: DUPILUMAB
     Indication: Cutaneous T-cell lymphoma
  4. TRIAMCINOLONE [Concomitant]
     Active Substance: TRIAMCINOLONE
     Indication: Dermatitis
     Dosage: AS OFTEN AS 3 TIMES WEEKLY OVER MANY YEARS
     Route: 061
  5. TRIAMCINOLONE [Concomitant]
     Active Substance: TRIAMCINOLONE
     Indication: Neurodermatitis
  6. PREDNISONE [Concomitant]
     Active Substance: PREDNISONE
     Indication: Restrictive pulmonary disease
     Dosage: 60 MG, QD
     Route: 065
  7. PREDNISONE [Concomitant]
     Active Substance: PREDNISONE
     Dosage: SLOWLY TAPERED OFF

REACTIONS (7)
  - Cutaneous T-cell lymphoma [Unknown]
  - Disease progression [Unknown]
  - Unintentional use for unapproved indication [Unknown]
  - Skin plaque [Unknown]
  - Rash erythematous [Unknown]
  - Skin exfoliation [Unknown]
  - Unmasking of previously unidentified disease [Unknown]
